FAERS Safety Report 5212317-1 (Version None)
Quarter: 2006Q4

REPORT INFORMATION
  Report Type: 
  Country: None (occurrence: None)
  Receive Date: 20061130
  Receipt Date: 20060315
  Transmission Date: 20070319
  Serious: Yes (Hospitalization, Disabling, Other)
  Sender: FDA-Public Use
  Company Number: WAES 0603USA02798

PATIENT
  Age: 56 Year
  Sex: Female

DRUGS (12)
  1. FOSAMAX [Suspect]
     Indication: OSTEOPOROSIS
     Dosage: 70 MG/WKY/PO
     Route: 048
     Dates: start: 20050101, end: 20060311
  2. AMBIEN [Concomitant]
  3. CLOZARIL [Concomitant]
  4. DETROL [Concomitant]
  5. LUVOX [Concomitant]
  6. MAALOX FAST BLOCKER [Concomitant]
  7. OS-CAL [Concomitant]
  8. PLAVIX [Concomitant]
  9. PREVACID [Concomitant]
  10. VICODIN [Concomitant]
  11. XANAX [Concomitant]
  12. LACTULOSE [Concomitant]

REACTIONS (2)
  - EROSIVE OESOPHAGITIS [None]
  - GASTRITIS [None]
